FAERS Safety Report 4724345-0 (Version None)
Quarter: 2005Q3

REPORT INFORMATION
  Report Type: 
  Country: None (occurrence: None)
  Receive Date: 20050722
  Receipt Date: 20050714
  Transmission Date: 20060218
  Serious: Yes (Death, Hospitalization)
  Sender: FDA-Public Use
  Company Number: RS005316-J

PATIENT
  Age: 61 Year
  Sex: Male
  Weight: 171 kg

DRUGS (3)
  1. RABEPRAZOLE SODIUM [Suspect]
     Indication: GASTRIC ULCER HAEMORRHAGE
     Dosage: 20 MG, 2 IN 1 D, ORAL
     Route: 048
     Dates: start: 20050620, end: 20050630
  2. SELBEX (TEPRENONE) [Concomitant]
  3. ALUMINUM HYDROXIDE AND MAGNESIUM TRISILICATE [Concomitant]

REACTIONS (10)
  - CARDIAC FAILURE ACUTE [None]
  - DEPRESSED LEVEL OF CONSCIOUSNESS [None]
  - HAEMATURIA [None]
  - HAEMOLYSIS [None]
  - HAEMOLYTIC ANAEMIA [None]
  - IMMUNE SYSTEM DISORDER [None]
  - MALNUTRITION [None]
  - SHOCK [None]
  - SKIN DISCOLOURATION [None]
  - URINE BILIRUBIN INCREASED [None]
